FAERS Safety Report 7013608-4 (Version None)
Quarter: 2010Q3

REPORT INFORMATION
  Report Type: 
  Country: None (occurrence: None)
  Receive Date: 20100924
  Receipt Date: 20100916
  Transmission Date: 20110219
  Serious: Yes (Other)
  Sender: FDA-Public Use
  Company Number: CA-JNJCH-2010021258

PATIENT
  Age: 62 Year
  Sex: Female
  Weight: 79.4 kg

DRUGS (8)
  1. LUBRIDERM UNSCENTED [Suspect]
     Indication: SKIN DISORDER
     Dosage: TEXT:SIX SQUIRTS ONCE DAILY
     Route: 061
  2. ANASTROZOLE [Concomitant]
     Indication: NEOPLASM MALIGNANT
     Dosage: TEXT:2MG 1X DAILY
     Route: 065
  3. LIPITOR [Concomitant]
     Indication: BLOOD PRESSURE
     Dosage: TEXT:10MG 1X DAILY
     Route: 065
  4. ALTACE [Concomitant]
     Indication: BLOOD PRESSURE
     Dosage: TEXT:10MG 1X DAILY
     Route: 065
  5. NORVASC [Concomitant]
     Indication: BLOOD PRESSURE
     Dosage: TEXT:5MG 1X DAILY
     Route: 065
  6. ACTONEL [Concomitant]
     Indication: BLOOD CALCIUM
     Dosage: TEXT:35MG 1X WEEK
     Route: 065
  7. CALCIUM [Concomitant]
     Indication: ROUTINE HEALTH MAINTENANCE
     Dosage: TEXT:1X DAILY
     Route: 065
  8. VITAMIN D [Concomitant]
     Indication: ROUTINE HEALTH MAINTENANCE
     Dosage: TEXT:1X DAILY
     Route: 065

REACTIONS (1)
  - BREAST CANCER [None]
